FAERS Safety Report 24601707 (Version 1)
Quarter: 2024Q4

REPORT INFORMATION
  Report Type: Spontaneous
  Country: US (occurrence: US)
  Receive Date: 20241111
  Receipt Date: 20241111
  Transmission Date: 20250114
  Serious: No
  Sender: ROCHE
  Company Number: US-ROCHE-10000127847

PATIENT
  Sex: Female

DRUGS (20)
  1. ACTEMRA ACTPEN [Suspect]
     Active Substance: TOCILIZUMAB
     Indication: Rheumatoid arthritis
     Route: 058
  2. MIRTAZAPINE [Concomitant]
     Active Substance: MIRTAZAPINE
  3. OZEMPIC [Concomitant]
     Active Substance: SEMAGLUTIDE
  4. REPATHA [Concomitant]
     Active Substance: EVOLOCUMAB
  5. CARVEDILOL [Concomitant]
     Active Substance: CARVEDILOL
  6. DICLOFENAC [Concomitant]
     Active Substance: DICLOFENAC
  7. FAMOTIDINE [Concomitant]
     Active Substance: FAMOTIDINE
  8. FOLIC ACID [Concomitant]
     Active Substance: FOLIC ACID
  9. FUROSEMIDE [Concomitant]
     Active Substance: FUROSEMIDE
  10. IPRATROPIUM [Concomitant]
     Active Substance: IPRATROPIUM
  11. KEVZARA [Concomitant]
     Active Substance: SARILUMAB
  12. LEVALBUTEROL [Concomitant]
     Active Substance: LEVALBUTEROL
  13. LINZESS [Concomitant]
     Active Substance: LINACLOTIDE
  14. NIFEDIPINE [Concomitant]
     Active Substance: NIFEDIPINE
  15. OXYCODONE [Concomitant]
     Active Substance: OXYCODONE
  16. PREDNISONE [Concomitant]
     Active Substance: PREDNISONE
  17. PREGABALIN [Concomitant]
     Active Substance: PREGABALIN
  18. ROSUVASTATIN [Concomitant]
     Active Substance: ROSUVASTATIN
  19. TRAZODONE [Concomitant]
     Active Substance: TRAZODONE HYDROCHLORIDE
  20. VITAMIN D3 [Concomitant]
     Active Substance: CHOLECALCIFEROL

REACTIONS (3)
  - Depression [Unknown]
  - Memory impairment [Unknown]
  - Drug ineffective [Unknown]
